FAERS Safety Report 9495955 (Version 1)
Quarter: 2013Q3

REPORT INFORMATION
  Report Type: Spontaneous
  Country: US (occurrence: US)
  Receive Date: 20130904
  Receipt Date: 20130904
  Transmission Date: 20140515
  Serious: Yes (Hospitalization)
  Sender: FDA-Public Use
  Company Number: US-009507513-1308USA014623

PATIENT
  Age: 78 Year
  Sex: Female

DRUGS (1)
  1. ZETIA [Suspect]
     Route: 048

REACTIONS (4)
  - Renal impairment [Unknown]
  - Malaise [Unknown]
  - Oedema peripheral [Unknown]
  - Decreased appetite [Unknown]
